FAERS Safety Report 20734927 (Version 1)
Quarter: 2022Q2

REPORT INFORMATION
  Report Type: Spontaneous
  Country: US (occurrence: US)
  Receive Date: 20220421
  Receipt Date: 20220421
  Transmission Date: 20220720
  Serious: Yes (Other)
  Sender: FDA-Public Use
  Company Number: US-GLAXOSMITHKLINE-US2022AMR065084

PATIENT
  Sex: Male

DRUGS (2)
  1. NUCALA [Suspect]
     Active Substance: MEPOLIZUMAB
     Indication: Asthma
     Dosage: 100 MG, Z , MONTHLY
     Route: 058
     Dates: start: 202012
  2. NUCALA [Suspect]
     Active Substance: MEPOLIZUMAB
     Dosage: 300 MG, Z, MONTHLY, 100MG/ML
     Route: 058
     Dates: start: 2021

REACTIONS (6)
  - Myositis [Unknown]
  - Vasculitis [Unknown]
  - Dyspnoea exertional [Unknown]
  - Eosinophilic granulomatosis with polyangiitis [Unknown]
  - Weight increased [Unknown]
  - Drug ineffective [Unknown]
